FAERS Safety Report 9441821 (Version 1)
Quarter: 2013Q3

REPORT INFORMATION
  Report Type: Spontaneous
  Country: ES (occurrence: None)
  Receive Date: 20130801
  Receipt Date: 20130801
  Transmission Date: 20140515
  Serious: Yes (Other)
  Sender: FDA-Public Use
  Company Number: ES-012424

PATIENT
  Age: 4 Year
  Sex: Female
  Weight: 9.7 kg

DRUGS (1)
  1. SOMATROPIN [Suspect]
     Indication: SMALL FOR DATES BABY
     Route: 058

REACTIONS (1)
  - VIIth nerve paralysis [None]
